FAERS Safety Report 12169872 (Version 1)
Quarter: 2016Q1

REPORT INFORMATION
  Report Type: Report from Study
  Country: US (occurrence: US)
  Receive Date: 20160310
  Receipt Date: 20160310
  Transmission Date: 20160526
  Serious: Yes (Other)
  Sender: FDA-Public Use
  Company Number: US-GILEAD-2015-0184347

PATIENT
  Age: 89 Year
  Sex: Male
  Weight: 78.5 kg

DRUGS (13)
  1. IDELALISIB [Suspect]
     Active Substance: IDELALISIB
     Dosage: 150 MG, ONCE DAILY, EVERY OTHER DAY
     Route: 048
  2. FOLIC ACID. [Concomitant]
     Active Substance: FOLIC ACID
     Dosage: UNK
     Dates: start: 20151215
  3. IDELALISIB [Suspect]
     Active Substance: IDELALISIB
     Dosage: 150 MG, TWICE DAILY, EVERY OTHER DAY
     Route: 048
  4. FISH OIL [Concomitant]
     Active Substance: FISH OIL
  5. LEXAPRO [Concomitant]
     Active Substance: ESCITALOPRAM OXALATE
  6. SUCRALFATE. [Concomitant]
     Active Substance: SUCRALFATE
  7. CHLORAMBUCIL [Concomitant]
     Active Substance: CHLORAMBUCIL
     Indication: CHRONIC LYMPHOCYTIC LEUKAEMIA
  8. TREANDA [Suspect]
     Active Substance: BENDAMUSTINE HYDROCHLORIDE
     Indication: CHRONIC LYMPHOCYTIC LEUKAEMIA
     Route: 065
  9. ATORVASTATIN [Concomitant]
     Active Substance: ATORVASTATIN
  10. RITUXAN [Concomitant]
     Active Substance: RITUXIMAB
     Indication: CHRONIC LYMPHOCYTIC LEUKAEMIA
  11. ASPIRIN                            /00002701/ [Concomitant]
     Active Substance: ASPIRIN
  12. ULORIC [Concomitant]
     Active Substance: FEBUXOSTAT
  13. IDELALISIB [Suspect]
     Active Substance: IDELALISIB
     Indication: CHRONIC LYMPHOCYTIC LEUKAEMIA
     Dosage: 150 MG, QD
     Route: 048
     Dates: start: 20151115

REACTIONS (7)
  - Stomatitis [Recovering/Resolving]
  - White blood cell count increased [Unknown]
  - Cheilitis [Unknown]
  - Drug ineffective [Unknown]
  - Off label use [Unknown]
  - Tumour lysis syndrome [Unknown]
  - Fatigue [Unknown]
